FAERS Safety Report 13442702 (Version 1)
Quarter: 2017Q2

REPORT INFORMATION
  Report Type: Spontaneous
  Country: US (occurrence: US)
  Receive Date: 20170413
  Receipt Date: 20170413
  Transmission Date: 20170830
  Serious: Yes (Other)
  Sender: FDA-Public Use
  Company Number: None

PATIENT
  Age: 36 Year
  Sex: Female
  Weight: 53.1 kg

DRUGS (1)
  1. CLINDAMYCIN PHOSPHATE. [Suspect]
     Active Substance: CLINDAMYCIN PHOSPHATE
     Indication: ACNE
     Dosage: QUANTITY:1 1;?
     Route: 061
     Dates: start: 20150930, end: 20170413

REACTIONS (3)
  - Application site erythema [None]
  - Erythema [None]
  - Application site pain [None]

NARRATIVE: CASE EVENT DATE: 20170413
